FAERS Safety Report 9294059 (Version 1)
Quarter: 2013Q1

REPORT INFORMATION
  Report Type: Spontaneous
  Country: US (occurrence: None)
  Receive Date: 20121218
  Receipt Date: 20121218
  Transmission Date: 20140127
  Serious: Yes (Hospitalization)
  Sender: FDA-Public Use
  Company Number: 2011110117

PATIENT
  Age: 33 Year
  Sex: 0

DRUGS (1)
  1. PEG [Suspect]
     Indication: BOWEL PREPARATION
     Route: 048

REACTIONS (1)
  - Anaphylactic reaction [None]
